FAERS Safety Report 5926927-7 (Version None)
Quarter: 2008Q4

REPORT INFORMATION
  Report Type: 
  Country: None (occurrence: None)
  Receive Date: 20081022
  Receipt Date: 20081015
  Transmission Date: 20090506
  Serious: Yes (Other)
  Sender: FDA-Public Use
  Company Number: US-JNJFOC-20081003798

PATIENT
  Age: 25 Year
  Sex: Female

DRUGS (4)
  1. TOPAMAX [Suspect]
     Indication: CONVULSION PROPHYLAXIS
     Route: 048
  2. LAMICTAL [Suspect]
  3. LAMICTAL [Suspect]
     Indication: CONVULSION PROPHYLAXIS
  4. ATIVAN [Suspect]
     Indication: CONVULSION PROPHYLAXIS

REACTIONS (3)
  - ABORTION SPONTANEOUS [None]
  - CONVULSION [None]
  - DRUG EXPOSURE DURING PREGNANCY [None]
